FAERS Safety Report 17089200 (Version 2)
Quarter: 2020Q1

REPORT INFORMATION
  Report Type: Report from Study
  Country: IT (occurrence: IT)
  Receive Date: 20191128
  Receipt Date: 20200331
  Transmission Date: 20200409
  Serious: Yes (Other)
  Sender: FDA-Public Use
  Company Number: PHHY2014IT170720

PATIENT
  Age: 49 Year
  Sex: Female

DRUGS (1)
  1. GILENYA [Suspect]
     Active Substance: FINGOLIMOD HYDROCHLORIDE
     Indication: MULTIPLE SCLEROSIS
     Dosage: 0.5 MG, QD
     Route: 048
     Dates: start: 20140326, end: 20200218

REACTIONS (6)
  - Urinary tract infection fungal [Recovered/Resolved with Sequelae]
  - Gamma-glutamyltransferase decreased [Unknown]
  - Vulvovaginal candidiasis [Recovered/Resolved]
  - Urinary tract candidiasis [Recovered/Resolved]
  - Cystitis [Unknown]
  - Urosepsis [Unknown]

NARRATIVE: CASE EVENT DATE: 20141113
